FAERS Safety Report 9098715 (Version 1)
Quarter: 2013Q1

REPORT INFORMATION
  Report Type: Spontaneous
  Country: US (occurrence: US)
  Receive Date: 20130213
  Receipt Date: 20130213
  Transmission Date: 20140127
  Serious: No
  Sender: FDA-Public Use
  Company Number: US-ALLERGAN-1216712US

PATIENT
  Sex: Male

DRUGS (2)
  1. LASTACAFT [Suspect]
     Indication: HYPERSENSITIVITY
     Dosage: 2 GTT, UNK
     Route: 047
  2. LASTACAFT [Suspect]
     Dosage: 4 GTT, UNK
     Route: 047

REACTIONS (3)
  - Drug hypersensitivity [Recovered/Resolved]
  - Ocular hyperaemia [Recovered/Resolved]
  - Drug ineffective [Unknown]
